FAERS Safety Report 17106137 (Version 1)
Quarter: 2019Q4

REPORT INFORMATION
  Report Type: Spontaneous
  Country: BG (occurrence: BG)
  Receive Date: 20191203
  Receipt Date: 20191203
  Transmission Date: 20200122
  Serious: Yes (Other)
  Sender: FDA-Public Use
  Company Number: BG-ASTRAZENECA-2019SF69625

PATIENT
  Sex: Female
  Weight: 36 kg

DRUGS (1)
  1. LYNPARZA [Suspect]
     Active Substance: OLAPARIB
     Indication: OVARIAN CANCER RECURRENT
     Route: 048

REACTIONS (2)
  - Anaemia [Unknown]
  - Haematotoxicity [Unknown]
